FAERS Safety Report 10557016 (Version 3)
Quarter: 2017Q1

REPORT INFORMATION
  Report Type: Report from Study
  Country: US (occurrence: US)
  Receive Date: 20141031
  Receipt Date: 20170112
  Transmission Date: 20170428
  Serious: Yes (Hospitalization)
  Sender: FDA-Public Use
  Company Number: US-ROCHE-1480516

PATIENT
  Sex: Female

DRUGS (6)
  1. TRASTUZUMAB [Suspect]
     Active Substance: TRASTUZUMAB
     Indication: METASTASES TO PERITONEUM
     Route: 042
  2. TRASTUZUMAB [Suspect]
     Active Substance: TRASTUZUMAB
     Indication: OVARIAN CANCER RECURRENT
  3. 212PB TCMC-TRASTUZUMAB [Suspect]
     Active Substance: TRASTUZUMAB
     Indication: METASTASES TO PERITONEUM
     Dosage: GIVEN IN 50 ML
     Route: 033
  4. FUROSEMIDE. [Suspect]
     Active Substance: FUROSEMIDE
     Indication: PROPHYLAXIS
     Dosage: USED FOR 10 DAYS FOR AS RENAL PROTECTIVE AGENTS
     Route: 065
  5. 212PB TCMC-TRASTUZUMAB [Suspect]
     Active Substance: TRASTUZUMAB
     Indication: OVARIAN CANCER RECURRENT
  6. POTASSIUM IODIDE. [Concomitant]
     Active Substance: POTASSIUM IODIDE
     Dosage: CONTINUED FOR 3 DAYS
     Route: 065

REACTIONS (2)
  - Intestinal perforation [Unknown]
  - Peritonitis [Unknown]
